FAERS Safety Report 10089938 (Version 3)
Quarter: 2014Q2

REPORT INFORMATION
  Report Type: Spontaneous
  Country: US (occurrence: None)
  Receive Date: 20140417
  Receipt Date: 20140522
  Transmission Date: 20141212
  Serious: Yes (Other)
  Sender: FDA-Public Use
  Company Number: UTC-044059

PATIENT
  Age: 74 Year
  Sex: Female
  Weight: 66.2 kg

DRUGS (1)
  1. TYVASO (TREPROSTINIL SODIUM (INHALED)) INHALATION GAS, 0.6 MG/ML [Suspect]
     Indication: COR PULMONALE CHRONIC
     Route: 055
     Dates: start: 20131228

REACTIONS (8)
  - Cataract operation [None]
  - Pyrexia [None]
  - Nausea [None]
  - Dry mouth [None]
  - Cough [None]
  - Diarrhoea [None]
  - Asthenia [None]
  - Post procedural complication [None]
